FAERS Safety Report 6838664-5 (Version None)
Quarter: 2010Q3

REPORT INFORMATION
  Report Type: 
  Country: None (occurrence: None)
  Receive Date: 20100713
  Receipt Date: 20070618
  Transmission Date: 20110219
  Serious: Yes (Other)
  Sender: FDA-Public Use
  Company Number: US-PFIZER INC-2007051137

PATIENT
  Sex: Female
  Weight: 61.818 kg

DRUGS (7)
  1. CHANTIX [Suspect]
     Indication: SMOKING CESSATION THERAPY
     Dates: start: 20070609
  2. TRAZODONE HYDROCHLORIDE [Concomitant]
  3. PAXIL [Concomitant]
  4. PERCOCET [Concomitant]
  5. CARDIOVASCULAR SYSTEM DRUGS [Concomitant]
     Indication: BLOOD PRESSURE ABNORMAL
  6. PRAVASTATIN [Concomitant]
     Indication: BLOOD CHOLESTEROL ABNORMAL
  7. ADVAIR DISKUS 100/50 [Concomitant]

REACTIONS (4)
  - DECREASED APPETITE [None]
  - DEPRESSION [None]
  - DYSPHAGIA [None]
  - WEIGHT DECREASED [None]
